FAERS Safety Report 19799184 (Version 1)
Quarter: 2021Q3

REPORT INFORMATION
  Report Type: Report from Study
  Country: JP (occurrence: JP)
  Receive Date: 20210907
  Receipt Date: 20210907
  Transmission Date: 20211014
  Serious: Yes (Hospitalization, Other)
  Sender: FDA-Public Use
  Company Number: JP-KYOWAKIRIN-2021AKK014841

PATIENT

DRUGS (67)
  1. DOXORUBICIN HYDROCHLORIDE. [Suspect]
     Active Substance: DOXORUBICIN HYDROCHLORIDE
     Dosage: UNK
     Route: 065
     Dates: start: 20180623, end: 20180709
  2. PREDNISOLONE. [Suspect]
     Active Substance: PREDNISOLONE
     Indication: ADULT T-CELL LYMPHOMA/LEUKAEMIA
     Dosage: UNK
     Route: 065
     Dates: start: 20180414, end: 20180503
  3. DEXCHLORPHENIRAMINE MALEATE. [Concomitant]
     Active Substance: DEXCHLORPHENIRAMINE MALEATE
     Indication: PROPHYLAXIS
     Dosage: UNK
     Route: 065
     Dates: start: 20180413, end: 20180413
  4. ISCOTIN [Concomitant]
     Active Substance: ISONIAZID
     Indication: INFECTION PROPHYLAXIS
     Dosage: UNK
     Route: 048
     Dates: start: 20180411
  5. UBIDECARENONE. [Concomitant]
     Active Substance: UBIDECARENONE
     Indication: PROPHYLAXIS
     Dosage: UNK
     Route: 048
     Dates: start: 20180411
  6. AMLODIPINE [AMLODIPINE BESILATE] [Concomitant]
     Active Substance: AMLODIPINE BESYLATE
     Dosage: UNK
     Route: 048
     Dates: start: 20180416, end: 20180422
  7. LOXOPROFEN [LOXOPROFEN SODIUM] [Concomitant]
     Active Substance: LOXOPROFEN SODIUM
     Indication: PYREXIA
     Dosage: UNK
     Route: 048
     Dates: start: 20180510, end: 20180513
  8. FILGRASTIM BS [FILGRASTIM BIOSIMILAR 1] [Concomitant]
     Active Substance: FILGRASTIM
     Dosage: UNK
     Route: 065
     Dates: start: 20180609, end: 20180614
  9. CYCLOPHOSPHAMIDE. [Suspect]
     Active Substance: CYCLOPHOSPHAMIDE
     Dosage: UNK
     Route: 065
     Dates: start: 20180623, end: 20180709
  10. PREDNISOLONE. [Suspect]
     Active Substance: PREDNISOLONE
     Dosage: UNK
     Route: 065
     Dates: start: 20180519, end: 20180607
  11. RANIMUSTINE [Suspect]
     Active Substance: RANIMUSTINE
     Indication: ADULT T-CELL LYMPHOMA/LEUKAEMIA
     Dosage: UNK
     Route: 065
     Dates: start: 20180414, end: 20180503
  12. RANIMUSTINE [Suspect]
     Active Substance: RANIMUSTINE
     Dosage: UNK
     Route: 065
     Dates: start: 20180519, end: 20180607
  13. ETOPOSIDE. [Suspect]
     Active Substance: ETOPOSIDE
     Indication: ADULT T-CELL LYMPHOMA/LEUKAEMIA
     Dosage: UNK
     Route: 065
     Dates: start: 20180414, end: 20180503
  14. DEXART [Concomitant]
     Active Substance: DEXAMETHASONE SODIUM PHOSPHATE
     Dosage: 6.6 MG
     Route: 065
     Dates: start: 20180622, end: 20180622
  15. FLUCONAZOLE. [Concomitant]
     Active Substance: FLUCONAZOLE
     Indication: INFECTION PROPHYLAXIS
     Dosage: UNK
     Route: 048
     Dates: start: 20180411
  16. CALONAL [Concomitant]
     Active Substance: ACETAMINOPHEN
     Indication: INFUSION RELATED REACTION
     Dosage: UNK
     Route: 048
     Dates: start: 20180508, end: 20180515
  17. NEW LECICARBON [Concomitant]
     Active Substance: SODIUM BICARBONATE\SODIUM PHOSPHATE, MONOBASIC
     Indication: CONSTIPATION
     Dosage: UNK
     Route: 054
     Dates: start: 20180422, end: 20180422
  18. FILGRASTIM BS [FILGRASTIM BIOSIMILAR 1] [Concomitant]
     Active Substance: FILGRASTIM
     Dosage: UNK
     Route: 065
     Dates: start: 20180521, end: 20180524
  19. MOGAMULIZUMAB [Suspect]
     Active Substance: MOGAMULIZUMAB
     Indication: ADULT T-CELL LYMPHOMA/LEUKAEMIA
     Dosage: 1 MG/KG
     Route: 041
     Dates: start: 20180413, end: 20180413
  20. MOGAMULIZUMAB [Suspect]
     Active Substance: MOGAMULIZUMAB
     Dosage: 1 MG/KG
     Route: 041
     Dates: start: 20180622, end: 20180622
  21. REVLIMID [Suspect]
     Active Substance: LENALIDOMIDE
     Indication: ADULT T-CELL LYMPHOMA/LEUKAEMIA
     Dosage: 15 MG
     Route: 048
     Dates: start: 20180823, end: 20180829
  22. REVLIMID [Suspect]
     Active Substance: LENALIDOMIDE
     Dosage: 10 MG
     Route: 048
     Dates: start: 20180830, end: 20181113
  23. CYCLOPHOSPHAMIDE. [Suspect]
     Active Substance: CYCLOPHOSPHAMIDE
     Indication: ADULT T-CELL LYMPHOMA/LEUKAEMIA
     Dosage: UNK
     Route: 065
     Dates: start: 20180414, end: 20180503
  24. DEXART [Concomitant]
     Active Substance: DEXAMETHASONE SODIUM PHOSPHATE
     Indication: PROPHYLAXIS
     Dosage: 6.6 MG
     Route: 065
     Dates: start: 20180413, end: 20180413
  25. VINCRISTINE SULFATE. [Suspect]
     Active Substance: VINCRISTINE SULFATE
     Indication: ADULT T-CELL LYMPHOMA/LEUKAEMIA
     Dosage: UNK
     Route: 065
     Dates: start: 20180414, end: 20180503
  26. DOXORUBICIN HYDROCHLORIDE. [Suspect]
     Active Substance: DOXORUBICIN HYDROCHLORIDE
     Indication: ADULT T-CELL LYMPHOMA/LEUKAEMIA
     Dosage: UNK
     Route: 065
     Dates: start: 20180414, end: 20180503
  27. RANIMUSTINE [Suspect]
     Active Substance: RANIMUSTINE
     Dosage: UNK
     Route: 065
     Dates: start: 20180623, end: 20180709
  28. VINDESINE SULFATE [Suspect]
     Active Substance: VINDESINE SULFATE
     Dosage: UNK
     Route: 065
     Dates: start: 20180623, end: 20180709
  29. ETOPOSIDE. [Suspect]
     Active Substance: ETOPOSIDE
     Dosage: UNK
     Route: 065
     Dates: start: 20180519, end: 20180607
  30. EQUA [Concomitant]
     Active Substance: VILDAGLIPTIN
     Dosage: UNK
     Route: 048
  31. LAXOBERON [Concomitant]
     Active Substance: SODIUM PICOSULFATE
     Indication: CONSTIPATION
     Dosage: UNK
     Route: 048
     Dates: start: 20180420, end: 20180421
  32. SENNOSIDE A+B [Concomitant]
     Active Substance: SENNOSIDES A AND B
     Indication: CONSTIPATION
     Dosage: UNK
     Route: 048
     Dates: start: 20180421, end: 20180610
  33. FILGRASTIM BS [FILGRASTIM BIOSIMILAR 1] [Concomitant]
     Active Substance: FILGRASTIM
     Dosage: UNK
     Route: 065
     Dates: start: 20180625, end: 20180628
  34. FILGRASTIM BS [FILGRASTIM BIOSIMILAR 1] [Concomitant]
     Active Substance: FILGRASTIM
     Dosage: UNK
     Route: 065
     Dates: start: 20180802, end: 20180810
  35. MOGAMULIZUMAB [Suspect]
     Active Substance: MOGAMULIZUMAB
     Dosage: 1 MG/KG
     Route: 041
     Dates: start: 20180518, end: 20180518
  36. MOGAMULIZUMAB [Suspect]
     Active Substance: MOGAMULIZUMAB
     Dosage: 1 MG/KG, 1X/4 WEEKS
     Route: 041
     Dates: start: 20180725, end: 20180822
  37. DEXCHLORPHENIRAMINE MALEATE. [Concomitant]
     Active Substance: DEXCHLORPHENIRAMINE MALEATE
     Dosage: UNK
     Route: 065
     Dates: start: 20180518, end: 20180518
  38. DAIPHEN [Concomitant]
     Active Substance: SULFAMETHOXAZOLE\TRIMETHOPRIM
     Indication: INFECTION PROPHYLAXIS
     Dosage: UNK
     Route: 048
     Dates: start: 20180411
  39. AMITIZA [Concomitant]
     Active Substance: LUBIPROSTONE
     Indication: CONSTIPATION
     Dosage: UNK
     Route: 048
     Dates: start: 20180421
  40. FILGRASTIM BS [FILGRASTIM BIOSIMILAR 1] [Concomitant]
     Active Substance: FILGRASTIM
     Indication: PROPHYLAXIS
     Dosage: UNK
     Route: 065
     Dates: start: 20180505, end: 20180513
  41. FILGRASTIM BS [FILGRASTIM BIOSIMILAR 1] [Concomitant]
     Active Substance: FILGRASTIM
     Dosage: UNK
     Route: 065
     Dates: start: 20180528, end: 20180603
  42. FILGRASTIM BS [FILGRASTIM BIOSIMILAR 1] [Concomitant]
     Active Substance: FILGRASTIM
     Dosage: UNK
     Route: 065
     Dates: start: 20180702, end: 20180705
  43. CYCLOPHOSPHAMIDE. [Suspect]
     Active Substance: CYCLOPHOSPHAMIDE
     Dosage: UNK
     Route: 065
     Dates: start: 20180519, end: 20180607
  44. PREDNISOLONE. [Suspect]
     Active Substance: PREDNISOLONE
     Dosage: UNK
     Route: 065
     Dates: start: 20180623, end: 20180709
  45. DEXART [Concomitant]
     Active Substance: DEXAMETHASONE SODIUM PHOSPHATE
     Dosage: 6.6 MG
     Route: 065
     Dates: start: 20180518, end: 20180518
  46. DEXART [Concomitant]
     Active Substance: DEXAMETHASONE SODIUM PHOSPHATE
     Dosage: 6.6 MG, 1X/4 WEEKS
     Route: 065
     Dates: start: 20180725, end: 20180822
  47. VOGLIBOSE [Concomitant]
     Active Substance: VOGLIBOSE
     Dosage: UNK
     Route: 048
     Dates: start: 20180412
  48. MIYA?BM [Concomitant]
     Active Substance: CLOSTRIDIUM BUTYRICUM SPORES STRAIN M-55
     Indication: PROPHYLAXIS
     Dosage: UNK
     Route: 048
     Dates: start: 20180411
  49. BARACLUDE [Concomitant]
     Active Substance: ENTECAVIR
     Indication: HEPATITIS B DNA INCREASED
     Dosage: UNK
     Route: 048
     Dates: start: 20180709
  50. XYZAL [Concomitant]
     Active Substance: LEVOCETIRIZINE DIHYDROCHLORIDE
     Indication: PROPHYLAXIS
     Dosage: UNK
     Route: 048
     Dates: start: 20180524
  51. FILGRASTIM BS [FILGRASTIM BIOSIMILAR 1] [Concomitant]
     Active Substance: FILGRASTIM
     Dosage: UNK
     Route: 065
     Dates: start: 20180711, end: 20180716
  52. VINCRISTINE SULFATE. [Suspect]
     Active Substance: VINCRISTINE SULFATE
     Dosage: UNK
     Route: 065
     Dates: start: 20180519, end: 20180607
  53. VINCRISTINE SULFATE. [Suspect]
     Active Substance: VINCRISTINE SULFATE
     Dosage: UNK
     Route: 065
     Dates: start: 20180623, end: 20180709
  54. VINDESINE SULFATE [Suspect]
     Active Substance: VINDESINE SULFATE
     Indication: ADULT T-CELL LYMPHOMA/LEUKAEMIA
     Dosage: UNK
     Route: 065
     Dates: start: 20180414, end: 20180503
  55. VINDESINE SULFATE [Suspect]
     Active Substance: VINDESINE SULFATE
     Dosage: UNK
     Route: 065
     Dates: start: 20180519, end: 20180607
  56. ETOPOSIDE. [Suspect]
     Active Substance: ETOPOSIDE
     Dosage: UNK
     Route: 065
     Dates: start: 20180623, end: 20180709
  57. DEXCHLORPHENIRAMINE MALEATE. [Concomitant]
     Active Substance: DEXCHLORPHENIRAMINE MALEATE
     Dosage: UNK
     Route: 065
     Dates: start: 20180622, end: 20180622
  58. FEBURIC [Concomitant]
     Active Substance: FEBUXOSTAT
     Indication: PROPHYLAXIS
     Dosage: UNK
     Route: 048
     Dates: start: 20180410
  59. RABEPRAZOLE NA [Concomitant]
     Active Substance: RABEPRAZOLE SODIUM
     Indication: PROPHYLAXIS
     Dosage: UNK
     Route: 048
     Dates: start: 20180410
  60. FILGRASTIM BS [FILGRASTIM BIOSIMILAR 1] [Concomitant]
     Active Substance: FILGRASTIM
     Indication: MYELOSUPPRESSION
     Dosage: UNK
     Route: 065
     Dates: start: 20180423, end: 20180429
  61. DOXORUBICIN HYDROCHLORIDE. [Suspect]
     Active Substance: DOXORUBICIN HYDROCHLORIDE
     Dosage: UNK
     Route: 065
     Dates: start: 20180519, end: 20180607
  62. CARBOPLATIN. [Suspect]
     Active Substance: CARBOPLATIN
     Indication: ADULT T-CELL LYMPHOMA/LEUKAEMIA
     Dosage: UNK
     Route: 065
     Dates: start: 20180414, end: 20180503
  63. CARBOPLATIN. [Suspect]
     Active Substance: CARBOPLATIN
     Dosage: UNK
     Route: 065
     Dates: start: 20180519, end: 20180607
  64. CARBOPLATIN. [Suspect]
     Active Substance: CARBOPLATIN
     Dosage: UNK
     Route: 065
     Dates: start: 20180623, end: 20180709
  65. DEXCHLORPHENIRAMINE MALEATE. [Concomitant]
     Active Substance: DEXCHLORPHENIRAMINE MALEATE
     Dosage: UNK UNK, 1X/4 WEEKS
     Route: 065
     Dates: start: 20180725, end: 20180822
  66. CALONAL [Concomitant]
     Active Substance: ACETAMINOPHEN
     Indication: PYREXIA
     Dosage: UNK
     Route: 048
     Dates: start: 20180416, end: 20180417
  67. MAGNESIUM OXIDE. [Concomitant]
     Active Substance: MAGNESIUM OXIDE
     Indication: PROPHYLAXIS
     Dosage: UNK
     Route: 048
     Dates: start: 20180411

REACTIONS (9)
  - Eczema [Recovering/Resolving]
  - Pyrexia [Recovered/Resolved]
  - Myelosuppression [Recovering/Resolving]
  - Hepatitis B DNA increased [Recovered/Resolved]
  - Myelosuppression [Recovering/Resolving]
  - Constipation [Not Recovered/Not Resolved]
  - Purpura non-thrombocytopenic [Recovering/Resolving]
  - Infusion related reaction [Recovered/Resolved]
  - Myelosuppression [Recovered/Resolved]

NARRATIVE: CASE EVENT DATE: 20180415
